FAERS Safety Report 12498071 (Version 1)
Quarter: 2016Q2

REPORT INFORMATION
  Report Type: Spontaneous
  Country: FR (occurrence: FR)
  Receive Date: 20160626
  Receipt Date: 20160626
  Transmission Date: 20160815
  Serious: Yes (Hospitalization, Other)
  Sender: FDA-Public Use
  Company Number: FR-BAXTER-2016BAX031983

PATIENT
  Age: 38 Year
  Sex: Female

DRUGS (9)
  1. SEVOFLURANE BAXTER 1 ML/ML, LIQUIDE POUR INHALATION PAR VAPEUR [Suspect]
     Active Substance: SEVOFLURANE
     Indication: SALPINGECTOMY
     Route: 055
     Dates: start: 20150617, end: 20150617
  2. CEFOXITIN [Suspect]
     Active Substance: CEFOXITIN SODIUM
     Indication: SALPINGECTOMY
     Dosage: SINGLE DOSE
     Route: 042
     Dates: start: 20150617, end: 20150617
  3. PROPOFOL. [Suspect]
     Active Substance: PROPOFOL
     Indication: SALPINGECTOMY
     Dosage: SINGLE DOSE
     Route: 042
     Dates: start: 20150617, end: 20150617
  4. SUFENTANIL [Suspect]
     Active Substance: SUFENTANIL
     Indication: SALPINGECTOMY
     Dosage: SINGLE DOSE
     Route: 042
     Dates: start: 20150617, end: 20150617
  5. METHOTREXATE [Concomitant]
     Active Substance: METHOTREXATE
     Dosage: SINGLE DOSE
     Route: 030
     Dates: start: 20150524, end: 20150524
  6. NIMBEX [Suspect]
     Active Substance: CISATRACURIUM BESYLATE
     Indication: SALPINGECTOMY
     Dosage: SINGLE DOSE
     Route: 042
     Dates: start: 20150617, end: 20150617
  7. BI PROFENID LP [Suspect]
     Active Substance: KETOPROFEN
     Indication: PROCEDURAL PAIN
     Dosage: SCORED, SINGLE DOSE
     Route: 048
     Dates: start: 20150618, end: 20150618
  8. ACUPAN [Suspect]
     Active Substance: NEFOPAM HYDROCHLORIDE
     Indication: PROCEDURAL PAIN
     Dosage: SINGLE DOSE
     Route: 042
     Dates: start: 20150617, end: 20150617
  9. METHOTREXATE [Concomitant]
     Active Substance: METHOTREXATE
     Indication: ECTOPIC PREGNANCY
     Dosage: SINGLE DOSE
     Route: 030
     Dates: start: 20150517, end: 20150517

REACTIONS (3)
  - Hepatocellular injury [Recovered/Resolved]
  - Exposure during pregnancy [Recovered/Resolved]
  - Vomiting [Unknown]

NARRATIVE: CASE EVENT DATE: 20150617
